FAERS Safety Report 23992302 (Version 2)
Quarter: 2024Q2

REPORT INFORMATION
  Report Type: Spontaneous
  Country: US (occurrence: US)
  Receive Date: 20240620
  Receipt Date: 20240628
  Transmission Date: 20240716
  Serious: No
  Sender: FDA-Public Use
  Company Number: US-ROCHE-10000001527

PATIENT
  Sex: Female

DRUGS (6)
  1. XOLAIR [Suspect]
     Active Substance: OMALIZUMAB
     Indication: Asthma
     Route: 058
     Dates: start: 202405
  2. XOLAIR [Suspect]
     Active Substance: OMALIZUMAB
  3. CLARITIN [Concomitant]
     Active Substance: LORATADINE
  4. XYZAL [Concomitant]
     Active Substance: LEVOCETIRIZINE DIHYDROCHLORIDE
  5. SINGULAIR [Concomitant]
     Active Substance: MONTELUKAST SODIUM
  6. ALBUTEROL [Concomitant]
     Active Substance: ALBUTEROL
     Dosage: TWICE A WEEK

REACTIONS (5)
  - Urticaria [Unknown]
  - Fatigue [Unknown]
  - Chills [Unknown]
  - Arthritis [Unknown]
  - Alopecia [Unknown]
